FAERS Safety Report 12244005 (Version 1)
Quarter: 2016Q2

REPORT INFORMATION
  Report Type: Spontaneous
  Country: US (occurrence: US)
  Receive Date: 20160406
  Receipt Date: 20160406
  Transmission Date: 20160815
  Serious: No
  Sender: FDA-Public Use
  Company Number: US-GREER LABORATORIES, INC.-1050312

PATIENT
  Age: 37 Year
  Sex: Male
  Weight: 95.91 kg

DRUGS (8)
  1. MIXTURE OF STANDARDIZED MITES [Suspect]
     Active Substance: DERMATOPHAGOIDES FARINAE\DERMATOPHAGOIDES PTERONYSSINUS
     Route: 058
     Dates: start: 20120727
  2. MOLDS - MOLD MIX 3 [Suspect]
     Active Substance: ALTERNARIA ALTERNATA\CLADOSPORIUM SPHAEROSPERMUM\COCHLIOBOLUS SATIVUS
     Route: 058
     Dates: start: 20120727
  3. GS EASTERN 8 TREE MIX [Suspect]
     Active Substance: ALLERGENIC EXTRACT- 8 TREE MIX
     Route: 058
     Dates: start: 20120727
  4. POLLENS - WEEDS AND GARDEN PLANTS, RAGWEED, MIXED AMBROSIA [Suspect]
     Active Substance: AMBROSIA ARTEMISIIFOLIA POLLEN\AMBROSIA TRIFIDA POLLEN
     Route: 058
     Dates: start: 20120727
  5. STANDARDIZED CAT HAIR [Suspect]
     Active Substance: FELIS CATUS HAIR
     Indication: RHINITIS ALLERGIC
     Route: 058
     Dates: start: 20120727
  6. POLLENS - WEEDS, WEED MIX 2630 [Suspect]
     Active Substance: AMARANTHUS RETROFLEXUS POLLEN\CHENOPODIUM ALBUM POLLEN\RUMEX ACETOSELLA POLLEN\RUMEX CRISPUS POLLEN\XANTHIUM STRUMARIUM POLLEN
     Route: 058
     Dates: start: 20120727
  7. MIXTURE OF FOUR STANDARDIZED GRASSES [Suspect]
     Active Substance: AGROSTIS GIGANTEA POLLEN\DACTYLIS GLOMERATA POLLEN\PHLEUM PRATENSE POLLEN\POA PRATENSIS POLLEN
     Route: 058
     Dates: start: 20120727
  8. STANDARDIZED BERMUDA GRASS POLLEN [Suspect]
     Active Substance: CYNODON DACTYLON POLLEN
     Route: 058
     Dates: start: 20120727

REACTIONS (2)
  - Musculoskeletal stiffness [None]
  - Injection site pain [Not Recovered/Not Resolved]

NARRATIVE: CASE EVENT DATE: 20120727
